FAERS Safety Report 9979442 (Version 2)
Quarter: 2014Q1

REPORT INFORMATION
  Report Type: Report from Study
  Country: US (occurrence: US)
  Receive Date: 20140306
  Receipt Date: 20140306
  Transmission Date: 20141002
  Serious: No
  Sender: FDA-Public Use
  Company Number: US-ABBVIE-11P-163-0881604-00

PATIENT
  Age: 41 Year
  Sex: Male

DRUGS (19)
  1. HUMIRA 40 MG/ 0.8 ML PRE-FILLED SYRINGE [Suspect]
     Indication: PSORIASIS
     Dates: start: 2008, end: 20110125
  2. HUMIRA [Suspect]
     Indication: PSORIASIS
     Dates: start: 2007
  3. METHOTREXATE [Concomitant]
     Indication: PRODUCT USED FOR UNKNOWN INDICATION
     Route: 050
  4. FOLIC ACID [Concomitant]
     Indication: PRODUCT USED FOR UNKNOWN INDICATION
  5. CLOBETASOL [Concomitant]
     Indication: PSORIASIS
     Route: 061
  6. OTHER TOPICALS [Concomitant]
     Indication: PRODUCT USED FOR UNKNOWN INDICATION
     Route: 061
  7. NAPROXEN [Concomitant]
     Indication: PAIN
  8. XANAX [Concomitant]
     Indication: ANXIETY
  9. XANAX [Concomitant]
     Indication: DEPRESSION
  10. PRILOSEC [Concomitant]
     Indication: PRODUCT USED FOR UNKNOWN INDICATION
  11. CRESTOR [Concomitant]
     Indication: BLOOD TRIGLYCERIDES INCREASED
  12. CRESTOR [Concomitant]
     Indication: LOW DENSITY LIPOPROTEIN INCREASED
  13. OMEPRAZOLE [Concomitant]
     Indication: PRODUCT USED FOR UNKNOWN INDICATION
  14. CYMBALTA [Concomitant]
     Indication: FIBROMYALGIA
  15. CYCLOBENZAPRINE [Concomitant]
     Indication: PRODUCT USED FOR UNKNOWN INDICATION
  16. ANDROGEL [Concomitant]
     Indication: BLOOD TESTOSTERONE DECREASED
  17. SUPER PACK VITAMINS [Concomitant]
     Indication: PRODUCT USED FOR UNKNOWN INDICATION
  18. GLUCOSAMINE [Concomitant]
     Indication: PRODUCT USED FOR UNKNOWN INDICATION
  19. FISH OIL [Concomitant]
     Indication: PRODUCT USED FOR UNKNOWN INDICATION

REACTIONS (8)
  - Psoriasis [Not Recovered/Not Resolved]
  - Blood cholesterol increased [Unknown]
  - Arthralgia [Unknown]
  - Rash macular [Not Recovered/Not Resolved]
  - Rheumatoid arthritis [Not Recovered/Not Resolved]
  - Infection [Not Recovered/Not Resolved]
  - Nodule [Unknown]
  - Erythema [Unknown]
